FAERS Safety Report 17518619 (Version 1)
Quarter: 2020Q1

REPORT INFORMATION
  Report Type: Report from Study
  Country: CO (occurrence: CO)
  Receive Date: 20200310
  Receipt Date: 20200310
  Transmission Date: 20200409
  Serious: Yes (Other)
  Sender: FDA-Public Use
  Company Number: CO-ROCHE-1626753

PATIENT
  Sex: Female

DRUGS (1)
  1. ACTEMRA [Suspect]
     Active Substance: TOCILIZUMAB
     Indication: RHEUMATOID ARTHRITIS
     Route: 042
     Dates: start: 20120816

REACTIONS (9)
  - Arthropathy [Recovering/Resolving]
  - Arthralgia [Recovering/Resolving]
  - Hernia [Recovering/Resolving]
  - Pharyngitis [Unknown]
  - Immunodeficiency [Unknown]
  - Neck pain [Recovering/Resolving]
  - Influenza [Recovered/Resolved]
  - Pyrexia [Unknown]
  - Dysstasia [Recovering/Resolving]
